FAERS Safety Report 9715481 (Version 2)
Quarter: 2013Q4

REPORT INFORMATION
  Report Type: Spontaneous
  Country: US (occurrence: US)
  Receive Date: 20131127
  Receipt Date: 20131223
  Transmission Date: 20140711
  Serious: Yes (Hospitalization)
  Sender: FDA-Public Use
  Company Number: US-BIOGENIDEC-2013BI113120

PATIENT
  Age: 39 Year
  Sex: Male

DRUGS (8)
  1. TECFIDERA [Suspect]
     Indication: MULTIPLE SCLEROSIS
     Route: 048
     Dates: start: 20130610
  2. ALBUTEROL SULFATE [Concomitant]
  3. ALEVE [Concomitant]
  4. AMANTADINE HCL [Concomitant]
  5. LYRICA [Concomitant]
  6. NEURONTIN [Concomitant]
  7. PREDNISONE [Concomitant]
  8. PROTONIX [Concomitant]

REACTIONS (3)
  - Mitral valve incompetence [Unknown]
  - Tricuspid valve incompetence [Unknown]
  - Dyspnoea [Unknown]
